FAERS Safety Report 6165497-8 (Version None)
Quarter: 2009Q2

REPORT INFORMATION
  Report Type: 
  Country: None (occurrence: None)
  Receive Date: 20090423
  Receipt Date: 20090420
  Transmission Date: 20091009
  Serious: No
  Sender: FDA-Public Use
  Company Number: US-B.I. PHARMACEUTICALS,INC./RIDGEFIELD-2009-BP-03782BP

PATIENT
  Age: 51 Year
  Sex: Female

DRUGS (4)
  1. MIRAPEX [Suspect]
     Indication: RESTLESS LEGS SYNDROME
     Dosage: .125MG
     Route: 048
     Dates: start: 20090216, end: 20090217
  2. LIPITOR [Concomitant]
     Dosage: 20MG
  3. DARVOCET-N 100 [Concomitant]
  4. LEXAPRO [Concomitant]

REACTIONS (5)
  - FEELING ABNORMAL [None]
  - HALLUCINATION [None]
  - HYPOAESTHESIA [None]
  - MENTAL STATUS CHANGES [None]
  - PARAESTHESIA [None]
